FAERS Safety Report 6543630-3 (Version None)
Quarter: 2010Q1

REPORT INFORMATION
  Report Type: 
  Country: None (occurrence: None)
  Receive Date: 20100119
  Receipt Date: 20100119
  Transmission Date: 20100710
  Serious: Yes (Hospitalization)
  Sender: FDA-Public Use
  Company Number: None

PATIENT
  Sex: Male
  Weight: 90.7194 kg

DRUGS (7)
  1. SILDENAFIL CITRATE [Suspect]
     Indication: PULMONARY HYPERTENSION
     Dosage: 20 MG TID PO
     Route: 048
     Dates: start: 20080107, end: 20080401
  2. VIAGRA [Suspect]
     Indication: PULMONARY HYPERTENSION
     Dosage: 50 MG 1/2 TAB TID PO
     Route: 048
     Dates: start: 20080402
  3. RANITIDINE [Concomitant]
  4. COLACE [Concomitant]
  5. FINASTERIDE [Concomitant]
  6. BISOPROLOL FUMARATE AND HYDROCHLOROTHIAZIDE [Concomitant]
  7. ACIPHEX [Concomitant]

REACTIONS (1)
  - PULMONARY EMBOLISM [None]
